FAERS Safety Report 8245195-7 (Version None)
Quarter: 2012Q1

REPORT INFORMATION
  Report Type: 
  Country: None (occurrence: None)
  Receive Date: 20120329
  Receipt Date: 20120321
  Transmission Date: 20120608
  Serious: Yes (Hospitalization)
  Sender: FDA-Public Use
  Company Number: US-ROCHE-1022781

PATIENT
  Sex: Female

DRUGS (3)
  1. KLONOPIN [Concomitant]
  2. PEGINTERFERON ALFA-2A [Suspect]
     Indication: HEPATITIS C
     Route: 058
     Dates: start: 20111111
  3. COPEGUS [Suspect]
     Indication: HEPATITIS C
     Route: 048
     Dates: start: 20111111

REACTIONS (4)
  - CHEST PAIN [None]
  - ANXIETY [None]
  - NAUSEA [None]
  - MIGRAINE [None]
